FAERS Safety Report 25254387 (Version 1)
Quarter: 2025Q2

REPORT INFORMATION
  Report Type: Spontaneous
  Country: IT (occurrence: IT)
  Receive Date: 20250430
  Receipt Date: 20250430
  Transmission Date: 20250716
  Serious: Yes (Hospitalization, Other)
  Sender: ALKEM
  Company Number: IT-ALKEM LABORATORIES LIMITED-IT-ALKEM-2025-04367

PATIENT
  Age: 23 Year
  Sex: Male

DRUGS (2)
  1. LACOSAMIDE [Interacting]
     Active Substance: LACOSAMIDE
     Indication: Seizure
     Dosage: 50 MILLIGRAM, BID
     Route: 065
  2. MIDAZOLAM [Concomitant]
     Active Substance: MIDAZOLAM
     Indication: Seizure
     Route: 065

REACTIONS (3)
  - Rhabdomyolysis [Unknown]
  - Blood creatine phosphokinase increased [Recovered/Resolved]
  - Drug interaction [Unknown]
